FAERS Safety Report 14125863 (Version 2)
Quarter: 2017Q4

REPORT INFORMATION
  Report Type: Spontaneous
  Country: US (occurrence: US)
  Receive Date: 20171025
  Receipt Date: 20171102
  Transmission Date: 20180321
  Serious: Yes (Hospitalization, Other)
  Sender: FDA-Public Use
  Company Number: US-MALLINCKRODT-T201704237

PATIENT
  Sex: Female
  Weight: 66 kg

DRUGS (2)
  1. LEVOTHYROXINE. [Concomitant]
     Active Substance: LEVOTHYROXINE
     Indication: PRODUCT USED FOR UNKNOWN INDICATION
     Dosage: UNK
     Route: 065
  2. H.P. ACTHAR [Suspect]
     Active Substance: CORTICOTROPIN
     Indication: FOCAL SEGMENTAL GLOMERULOSCLEROSIS
     Dosage: 80 UNITS/ML, ONCE EVERY THREE WEEKS
     Route: 058
     Dates: start: 20170823

REACTIONS (7)
  - Blood creatinine increased [Unknown]
  - Product storage error [Unknown]
  - Renal impairment [Unknown]
  - Drug ineffective [Not Recovered/Not Resolved]
  - Urine output decreased [Unknown]
  - Proteinuria [Unknown]
  - Swelling [Unknown]
